FAERS Safety Report 6678216-3 (Version None)
Quarter: 2010Q2

REPORT INFORMATION
  Report Type: 
  Country: None (occurrence: None)
  Receive Date: 20100408
  Receipt Date: 20100408
  Transmission Date: 20101027
  Serious: Yes (Life-Threatening)
  Sender: FDA-Public Use
  Company Number: None

PATIENT
  Sex: Female
  Weight: 278 kg

DRUGS (1)
  1. PRECEDEX [Suspect]
     Indication: SEDATION
     Dosage: 1.5 MCG/KG/MIN CONTINUOUS INFUSION IV DRIP
     Route: 041
     Dates: start: 20100324, end: 20100326

REACTIONS (2)
  - BLOOD CREATINE PHOSPHOKINASE INCREASED [None]
  - HYPERTHERMIA [None]
